FAERS Safety Report 16042257 (Version 17)
Quarter: 2021Q3

REPORT INFORMATION
  Report Type: Other
  Country: DE (occurrence: DE)
  Receive Date: 20190306
  Receipt Date: 20210813
  Transmission Date: 20211014
  Serious: Yes (Other)
  Sender: FDA-Public Use
  Company Number: DE-ROCHE-2248869

PATIENT
  Age: 42 Year
  Sex: Female
  Weight: 50 kg

DRUGS (10)
  1. FINGOLIMOD. [Concomitant]
     Active Substance: FINGOLIMOD
     Dates: start: 201609, end: 201709
  2. INTERFERON BETA?1A [Concomitant]
     Active Substance: INTERFERON BETA-1A
     Route: 030
     Dates: start: 201208, end: 201308
  3. OCRELIZUMAB. [Suspect]
     Active Substance: OCRELIZUMAB
     Route: 042
     Dates: start: 20190117
  4. OCRELIZUMAB. [Suspect]
     Active Substance: OCRELIZUMAB
     Indication: MULTIPLE SCLEROSIS
     Route: 042
     Dates: start: 20180703, end: 20180717
  5. OCRELIZUMAB. [Suspect]
     Active Substance: OCRELIZUMAB
     Route: 042
     Dates: start: 20180717, end: 20180717
  6. GILENYA [Suspect]
     Active Substance: FINGOLIMOD HYDROCHLORIDE
     Indication: MULTIPLE SCLEROSIS
     Route: 048
     Dates: start: 201609, end: 201805
  7. NATALIZUMAB [Concomitant]
     Active Substance: NATALIZUMAB
     Dates: start: 201409, end: 201412
  8. DEKRISTOL [Concomitant]
     Active Substance: CHOLECALCIFEROL
     Indication: VITAMIN D DEFICIENCY
     Dosage: ONGOING
     Route: 048
     Dates: end: 20190117
  9. FAMPYRA [Concomitant]
     Active Substance: DALFAMPRIDINE
     Indication: MULTIPLE SCLEROSIS
     Dosage: ONGOING
     Route: 048
  10. GILENYA [Suspect]
     Active Substance: FINGOLIMOD HYDROCHLORIDE
     Route: 065
     Dates: start: 201710, end: 201805

REACTIONS (7)
  - Hot flush [Recovered/Resolved]
  - Dizziness [Recovered/Resolved]
  - Basal cell carcinoma [Recovered/Resolved]
  - Pharyngeal disorder [Unknown]
  - Amenorrhoea [Recovered/Resolved]
  - Throat irritation [Recovered/Resolved]
  - Vertigo positional [Unknown]

NARRATIVE: CASE EVENT DATE: 20180731
